FAERS Safety Report 25245490 (Version 1)
Quarter: 2025Q2

REPORT INFORMATION
  Report Type: Spontaneous
  Country: US (occurrence: None)
  Receive Date: 20250425
  Receipt Date: 20250425
  Transmission Date: 20250717
  Serious: No
  Sender: FDA-CTU
  Company Number: None

PATIENT
  Age: 44 Year
  Sex: Male

DRUGS (1)
  1. MAVYRET [Suspect]
     Active Substance: GLECAPREVIR\PIBRENTASVIR
     Indication: Chronic hepatitis C
     Dosage: OTHER QUANTITY : 100/40MG;?FREQUENCY : DAILY;?
     Route: 048
     Dates: start: 20250403, end: 20250410

REACTIONS (1)
  - Testicular pain [None]

NARRATIVE: CASE EVENT DATE: 20250403
